FAERS Safety Report 13672315 (Version 1)
Quarter: 2017Q2

REPORT INFORMATION
  Report Type: Report from Study
  Country: US (occurrence: BR)
  Receive Date: 20170620
  Receipt Date: 20170620
  Transmission Date: 20170830
  Serious: Yes (Life-Threatening)
  Sender: FDA-Public Use
  Company Number: US-SUNOVION-2017SUN002589

PATIENT
  Sex: Female

DRUGS (1)
  1. INDACATEROL AND GLYCOPYRROLATE [Suspect]
     Active Substance: GLYCOPYRROLATE\INDACATEROL MALEATE
     Indication: CHRONIC OBSTRUCTIVE PULMONARY DISEASE
     Dosage: 110/50
     Route: 055
     Dates: start: 201703

REACTIONS (7)
  - Oral disorder [Recovering/Resolving]
  - Decreased appetite [Recovering/Resolving]
  - Pain [Recovering/Resolving]
  - Malaise [Recovering/Resolving]
  - Feeling abnormal [Recovering/Resolving]
  - Breath odour [Recovering/Resolving]
  - Dysgeusia [Recovering/Resolving]
